FAERS Safety Report 10162151 (Version 1)
Quarter: 2014Q2

REPORT INFORMATION
  Report Type: Spontaneous
  Country: FR (occurrence: FR)
  Receive Date: 20140509
  Receipt Date: 20140509
  Transmission Date: 20141212
  Serious: Yes (Hospitalization, Other)
  Sender: FDA-Public Use
  Company Number: FR-BAYER-2014-063909

PATIENT
  Age: 80 Year
  Sex: Female

DRUGS (4)
  1. NAPROXEN SODIUM ({= 220 MG) [Suspect]
     Indication: ARTHRALGIA
     Dosage: 750 MG, QD
  2. ROVAMYCIN [Suspect]
  3. BILASTINE [Concomitant]
  4. AMOXICILLINE [Concomitant]

REACTIONS (7)
  - Pulmonary eosinophilia [Recovered/Resolved]
  - Hypoxia [Recovered/Resolved]
  - Hypocapnia [Recovered/Resolved]
  - Renal failure [None]
  - Haematuria [None]
  - Hepatocellular injury [None]
  - Skin lesion [None]
